FAERS Safety Report 7483735-6 (Version None)
Quarter: 2011Q2

REPORT INFORMATION
  Report Type: 
  Country: None (occurrence: None)
  Receive Date: 20110517
  Receipt Date: 20110504
  Transmission Date: 20111010
  Serious: Yes (Hospitalization, Other)
  Sender: FDA-Public Use
  Company Number: PHHY2010BR66718

PATIENT
  Sex: Female

DRUGS (2)
  1. EXELON [Suspect]
     Indication: DEMENTIA ALZHEIMER'S TYPE
     Dosage: UNK
     Route: 048
  2. EXELON [Suspect]
     Dosage: 6 MG, BID
     Route: 048
     Dates: end: 20101004

REACTIONS (7)
  - POST PROCEDURAL HAEMORRHAGE [None]
  - COLD SWEAT [None]
  - CYANOSIS [None]
  - ISCHAEMIC STROKE [None]
  - CARDIO-RESPIRATORY ARREST [None]
  - VAGINAL HAEMORRHAGE [None]
  - ENDOMETRIAL CANCER [None]
